FAERS Safety Report 4701595-0 (Version None)
Quarter: 2005Q2

REPORT INFORMATION
  Report Type: 
  Country: None (occurrence: None)
  Receive Date: 20050627
  Receipt Date: 20050621
  Transmission Date: 20051028
  Serious: Yes (Death, Hospitalization)
  Sender: FDA-Public Use
  Company Number: A044-002-005617

PATIENT
  Age: 77 Year
  Sex: Female
  Weight: 45 kg

DRUGS (4)
  1. ARICEPT [Suspect]
     Indication: DEMENTIA ALZHEIMER'S TYPE
     Dosage: 10 MG, 1 IN 1 D, ORAL
     Route: 048
     Dates: start: 20040210, end: 20050520
  2. FLUINDIONE               (FLUINDIONE) [Concomitant]
  3. LEVOTHYROXINE SODIQUE               (LEVOTHYROXINE) [Concomitant]
  4. PAROXETINE HYDROCHLORIDE [Concomitant]

REACTIONS (6)
  - ARRHYTHMIA [None]
  - CARDIAC FAILURE [None]
  - CONDITION AGGRAVATED [None]
  - DISORIENTATION [None]
  - MALNUTRITION [None]
  - MEMORY IMPAIRMENT [None]
